FAERS Safety Report 8642375 (Version 2)
Quarter: 2012Q4

REPORT INFORMATION
  Report Type: 
  Country: US (occurrence: US)
  Receive Date: 20120628
  Receipt Date: 20121001
  Transmission Date: 20130627
  Serious: Yes (Hospitalization, Other)
  Sender: FDA-Public Use
  Company Number: US-RB-041696-12

PATIENT
  Age: 52 Year
  Sex: Male

DRUGS (6)
  1. SUBOXONE FILM [Suspect]
     Indication: PAIN
     Dosage: Suboxone film: using 1/4 film
     Route: 060
     Dates: end: 2012
  2. SUBOXONE FILM [Suspect]
     Dosage: Suboxone film: use 1/2 film
     Route: 060
     Dates: start: 2012
  3. SUBOXONE TABLET [Suspect]
     Indication: PAIN
     Dosage: Use 1/4 tablet
     Route: 060
     Dates: start: 2008, end: 2012
  4. SUBOXONE TABLET [Suspect]
     Dosage: Use 1/2 tablet
     Route: 060
     Dates: start: 2012
  5. ALCOHOL [Suspect]
     Indication: PRODUCT USED FOR UNKNOWN INDICATION
     Dosage: Dosing details unknown
     Route: 048
  6. CANNABIS SATIVA SUBSP. INDICA TOP [Suspect]
     Indication: PRODUCT USED FOR UNKNOWN INDICATION
     Dosage: Dosing details unknown
     Route: 055

REACTIONS (6)
  - Cerebrovascular accident [Recovered/Resolved]
  - Hemiparesis [Recovering/Resolving]
  - Carotid artery occlusion [Not Recovered/Not Resolved]
  - Substance abuse [Not Recovered/Not Resolved]
  - Wrong technique in drug usage process [Not Recovered/Not Resolved]
  - Off label use [Not Recovered/Not Resolved]
